FAERS Safety Report 8627043 (Version 4)
Quarter: 2012Q4

REPORT INFORMATION
  Report Type: 
  Country: DE (occurrence: DE)
  Receive Date: 20120620
  Receipt Date: 20121018
  Transmission Date: 20130627
  Serious: Yes (Other)
  Sender: FDA-Public Use
  Company Number: DE-AMGEN-DEUSP2012037542

PATIENT
  Age: 70 Year
  Sex: Male
  Weight: 83 kg

DRUGS (7)
  1. PROLIA [Suspect]
     Indication: OSTEOPOROSIS
     Dosage: 60 mg, q6mo
     Route: 058
     Dates: start: 20110711, end: 20120116
  2. BONVIVA                            /01304701/ [Concomitant]
  3. LEFLUNOMIDE [Concomitant]
     Indication: RHEUMATOID ARTHRITIS
     Dosage: 10 mg, qd
     Route: 048
     Dates: start: 200007, end: 20120511
  4. METHOTREXATE [Concomitant]
     Indication: RHEUMATOID ARTHRITIS
     Dosage: 15 mg, qwk
     Route: 048
     Dates: start: 1998
  5. PREDNISOLONE [Concomitant]
     Indication: RHEUMATOID ARTHRITIS
     Dosage: 5 mg, qd
     Route: 048
     Dates: start: 1998
  6. ASS [Concomitant]
     Indication: CORONARY ARTERY DISEASE
     Dosage: 100 mg, qd
     Route: 048
     Dates: start: 2005
  7. PANTOPRAZOLE [Concomitant]
     Indication: PROPHYLAXIS AGAINST GASTROINTESTINAL ULCER
     Dosage: 20 mg, qd
     Route: 048
     Dates: start: 2005

REACTIONS (2)
  - Tooth extraction [Recovering/Resolving]
  - Osteonecrosis of jaw [Not Recovered/Not Resolved]
